FAERS Safety Report 5916683-0 (Version None)
Quarter: 2008Q4

REPORT INFORMATION
  Report Type: 
  Country: None (occurrence: None)
  Receive Date: 20081013
  Receipt Date: 20081002
  Transmission Date: 20090506
  Serious: Yes (Hospitalization)
  Sender: FDA-Public Use
  Company Number: CA-BAXTER-2008BH010734

PATIENT

DRUGS (2)
  1. SODIUM CHLORIDE 0.9% IN PLASTIC CONTAINER [Suspect]
     Indication: DRUG USE FOR UNKNOWN INDICATION
     Dosage: DOSE UNIT:UNKNOWN
     Route: 042
  2. CHEMOTHERAPY [Concomitant]

REACTIONS (2)
  - DRUG ADMINISTRATION ERROR [None]
  - PULMONARY OEDEMA [None]
